FAERS Safety Report 8308030-4 (Version None)
Quarter: 2012Q2

REPORT INFORMATION
  Report Type: 
  Country: None (occurrence: None)
  Receive Date: 20120424
  Receipt Date: 20120417
  Transmission Date: 20120825
  Serious: Yes (Death, Hospitalization, Other)
  Sender: FDA-Public Use
  Company Number: FR-JNJFOC-20120408717

PATIENT

DRUGS (1)
  1. DOXORUBICIN HCL [Suspect]
     Indication: BREAST CANCER METASTATIC
     Route: 042

REACTIONS (10)
  - PALMAR-PLANTAR ERYTHRODYSAESTHESIA SYNDROME [None]
  - ADVERSE EVENT [None]
  - DEATH [None]
  - PATHOLOGICAL FRACTURE [None]
  - FRACTURE [None]
  - FATIGUE [None]
  - DECREASED APPETITE [None]
  - PAIN [None]
  - INFECTION [None]
  - BREAST CANCER METASTATIC [None]
